FAERS Safety Report 5892255-1 (Version None)
Quarter: 2008Q3

REPORT INFORMATION
  Report Type: 
  Country: None (occurrence: None)
  Receive Date: 20080922
  Receipt Date: 20080915
  Transmission Date: 20090109
  Serious: Yes (Death)
  Sender: FDA-Public Use
  Company Number: GB-GILEAD-2008-0018170

PATIENT
  Age: 43 Year
  Sex: Male

DRUGS (2)
  1. TENOFOVIR DISOPROXIL FUMARATE [Suspect]
  2. KIVEXA [Concomitant]

REACTIONS (1)
  - CEREBROVASCULAR ACCIDENT [None]
